FAERS Safety Report 10504279 (Version 3)
Quarter: 2014Q4

REPORT INFORMATION
  Report Type: Report from Study
  Country: US (occurrence: US)
  Receive Date: 20141008
  Receipt Date: 20141112
  Transmission Date: 20150528
  Serious: Yes (Hospitalization, Other)
  Sender: FDA-Public Use
  Company Number: US-JNJFOC-20141002069

PATIENT
  Age: 30 Year
  Sex: Female
  Weight: 66.23 kg

DRUGS (5)
  1. IMURAN [Concomitant]
     Active Substance: AZATHIOPRINE
     Indication: INFLAMMATORY BOWEL DISEASE
     Route: 065
     Dates: start: 2012
  2. PANTECTA [Concomitant]
     Active Substance: PANTOPRAZOLE SODIUM
     Indication: INFLAMMATORY BOWEL DISEASE
     Route: 065
  3. REMICADE [Suspect]
     Active Substance: INFLIXIMAB
     Indication: INFLAMMATORY BOWEL DISEASE
     Dosage: ^7.5^
     Route: 042
     Dates: start: 20130111
  4. REMICADE [Suspect]
     Active Substance: INFLIXIMAB
     Indication: INFLAMMATORY BOWEL DISEASE
     Dosage: ^7.5^
     Route: 042
     Dates: start: 20130721, end: 20140721
  5. PENTASA [Concomitant]
     Active Substance: MESALAMINE
     Indication: INFLAMMATORY BOWEL DISEASE
     Route: 065
     Dates: start: 2012

REACTIONS (5)
  - Infusion related reaction [Recovering/Resolving]
  - Lupus-like syndrome [Unknown]
  - Arthralgia [Recovering/Resolving]
  - Inflammatory bowel disease [Not Recovered/Not Resolved]
  - Hypokinesia [Recovering/Resolving]

NARRATIVE: CASE EVENT DATE: 2014
